FAERS Safety Report 5830742-2 (Version None)
Quarter: 2008Q3

REPORT INFORMATION
  Report Type: 
  Country: None (occurrence: None)
  Receive Date: 20080801
  Receipt Date: 20080325
  Transmission Date: 20090109
  Serious: No
  Sender: FDA-Public Use
  Company Number: US-BRISTOL-MYERS SQUIBB COMPANY-13966817

PATIENT
  Age: 74 Year
  Sex: Female
  Weight: 72 kg

DRUGS (6)
  1. COUMADIN [Suspect]
     Indication: ATRIAL FIBRILLATION
     Dosage: 5 MG TUESDAY, THURSDAY, SATURDAY AND SUNDAY. 7.5 MG MONDAY, WEDNESDAY, AND FRIDAY, SINCE MAY 2006.
     Dates: start: 20060501
  2. COUMADIN [Suspect]
     Indication: TRANSIENT ISCHAEMIC ATTACK
     Dosage: 5 MG TUESDAY, THURSDAY, SATURDAY AND SUNDAY. 7.5 MG MONDAY, WEDNESDAY, AND FRIDAY, SINCE MAY 2006.
     Dates: start: 20060501
  3. NEXIUM [Concomitant]
  4. VERELAN [Concomitant]
  5. MAXIDEX [Concomitant]
  6. NIASPAN [Concomitant]

REACTIONS (1)
  - NO ADVERSE EVENT [None]
